FAERS Safety Report 13387166 (Version 2)
Quarter: 2017Q2

REPORT INFORMATION
  Report Type: Spontaneous
  Country: US (occurrence: US)
  Receive Date: 20170330
  Receipt Date: 20170501
  Transmission Date: 20170830
  Serious: Yes (Death, Hospitalization)
  Sender: FDA-Public Use
  Company Number: US-BAUSCH-BL-2017-008075

PATIENT
  Sex: Male
  Weight: 59.02 kg

DRUGS (1)
  1. XIFAXAN [Suspect]
     Active Substance: RIFAXIMIN
     Indication: HEPATIC CIRRHOSIS
     Route: 048

REACTIONS (3)
  - Hepatic haemorrhage [Unknown]
  - Gastrointestinal haemorrhage [Unknown]
  - Hepatic failure [Fatal]
